FAERS Safety Report 23131574 (Version 1)
Quarter: 2023Q4

REPORT INFORMATION
  Report Type: Spontaneous
  Country: CN (occurrence: CN)
  Receive Date: 20231031
  Receipt Date: 20231031
  Transmission Date: 20240109
  Serious: Yes (Other)
  Sender: FDA-Public Use
  Company Number: CN-009507513-2310CHN011875

PATIENT
  Age: 78 Year
  Sex: Female
  Weight: 65 kg

DRUGS (1)
  1. JANUMET [Suspect]
     Active Substance: METFORMIN HYDROCHLORIDE\SITAGLIPTIN PHOSPHATE
     Indication: Diabetes mellitus
     Dosage: 1 TABLET, BID
     Route: 048
     Dates: start: 20231017, end: 20231019

REACTIONS (4)
  - Palpitations [Recovered/Resolved]
  - Nausea [Recovered/Resolved]
  - Vomiting [Recovered/Resolved]
  - Blood glucose abnormal [Unknown]

NARRATIVE: CASE EVENT DATE: 20231019
